FAERS Safety Report 20899004 (Version 4)
Quarter: 2022Q2

REPORT INFORMATION
  Report Type: Report from Study
  Country: CA (occurrence: CA)
  Receive Date: 20220601
  Receipt Date: 20220626
  Transmission Date: 20220720
  Serious: Yes (Hospitalization)
  Sender: FDA-Public Use
  Company Number: CA-ABBVIE-22K-028-4416041-00

PATIENT
  Age: 88 Year
  Sex: Female

DRUGS (1)
  1. HUMIRA [Suspect]
     Active Substance: ADALIMUMAB
     Indication: Colitis ulcerative
     Route: 058
     Dates: start: 20180724

REACTIONS (9)
  - Limb injury [Unknown]
  - Fractured sacrum [Unknown]
  - Arthralgia [Recovering/Resolving]
  - Pelvic pain [Unknown]
  - Constipation [Unknown]
  - Dizziness [Unknown]
  - Head injury [Unknown]
  - Fall [Unknown]
  - Presyncope [Unknown]

NARRATIVE: CASE EVENT DATE: 20220514
